FAERS Safety Report 9230735 (Version 2)
Quarter: 2013Q2

REPORT INFORMATION
  Report Type: Spontaneous
  Country: US (occurrence: None)
  Receive Date: 20121031
  Receipt Date: 20130107
  Transmission Date: 20140414
  Serious: Yes (Other)
  Sender: FDA-Public Use
  Company Number: PHEH2012US016590

PATIENT
  Age: 51 Year
  Sex: Female
  Weight: 90.7 kg

DRUGS (4)
  1. GILENYA (FTY) CAPSULE, 0.5MG [Suspect]
     Indication: MULTIPLE SCLEROSIS
     Route: 048
     Dates: start: 20120821
  2. MODAFINIL (MODAFINIL) [Concomitant]
  3. ZANAFLEX (TIZANIDINE HYDROCHLORIDE) [Concomitant]
  4. GABAPENTIN [Concomitant]

REACTIONS (3)
  - Fatigue [None]
  - Pyrexia [None]
  - Hot flush [None]
